FAERS Safety Report 6438093-2 (Version None)
Quarter: 2009Q4

REPORT INFORMATION
  Report Type: 
  Country: None (occurrence: None)
  Receive Date: 20091112
  Receipt Date: 20091102
  Transmission Date: 20100525
  Serious: Yes (Other)
  Sender: FDA-Public Use
  Company Number: RU-ELI_LILLY_AND_COMPANY-RU200911000105

PATIENT
  Sex: Female

DRUGS (6)
  1. HUMULIN N [Suspect]
     Indication: DIABETES MELLITUS
     Dosage: 8 U, 2/D (MORNING AND EVENING)
     Dates: start: 20091001
  2. HUMULIN R [Suspect]
     Indication: DIABETES MELLITUS
     Dosage: 6 U, EACH MORNING
     Dates: start: 20091001
  3. HUMULIN R [Suspect]
     Dosage: 8 U, MIDDAY
     Dates: start: 20091001
  4. HUMULIN R [Suspect]
     Dosage: 6 U, EACH EVENING
     Dates: start: 20091001
  5. LIPRIMAR [Concomitant]
  6. PREDUCTAL MR [Concomitant]

REACTIONS (3)
  - ABDOMINAL PAIN [None]
  - HEADACHE [None]
  - VISUAL ACUITY REDUCED [None]
